FAERS Safety Report 4305853-3 (Version None)
Quarter: 2004Q1

REPORT INFORMATION
  Report Type: 
  Country: None (occurrence: None)
  Receive Date: 20040225
  Receipt Date: 20040206
  Transmission Date: 20041129
  Serious: Yes (Life-Threatening, Disabling)
  Sender: FDA-Public Use
  Company Number: A01200400617

PATIENT
  Age: 22 Year
  Sex: Female

DRUGS (3)
  1. CLOPIDOGREL BISULFATE [Suspect]
     Indication: ARTERY DISSECTION
     Dosage: 75 MG, QD
     Route: 048
     Dates: start: 20031223, end: 20040111
  2. VALPROATE SODIUM [Suspect]
     Indication: BASILAR MIGRAINE
     Dosage: 600 MG QD
     Route: 048
     Dates: start: 20030901, end: 20040112
  3. VALPROATE SODIUM [Suspect]
     Indication: PROPHYLAXIS
     Dosage: 600 MG QD
     Route: 048
     Dates: start: 20030901, end: 20040112

REACTIONS (6)
  - GASTROINTESTINAL HAEMORRHAGE [None]
  - GRANULOMA [None]
  - HAEMATOMA [None]
  - HAEMOGLOBIN DECREASED [None]
  - PAIN [None]
  - RASH MACULAR [None]
